FAERS Safety Report 9192243 (Version 1)
Quarter: 2013Q1

REPORT INFORMATION
  Report Type: Spontaneous
  Country: AU (occurrence: None)
  Receive Date: 20130325
  Receipt Date: 20130325
  Transmission Date: 20140127
  Serious: Yes (Life-Threatening)
  Sender: FDA-Public Use
  Company Number: 2013AU008098

PATIENT
  Age: 70 Year
  Sex: Female

DRUGS (4)
  1. ALOXI [Suspect]
     Indication: PROPHYLAXIS OF NAUSEA AND VOMITING
     Dates: start: 20130109, end: 20130109
  2. ATIVAN (LORAZEPAM) [Suspect]
  3. CAELYX (DOXORUBICIN HYDROCHLORIDE) [Suspect]
  4. DEXAMETHASONE (DEXAMETHASONE) [Suspect]

REACTIONS (5)
  - Back pain [None]
  - Erythema [None]
  - Abdominal pain [None]
  - Pruritus [None]
  - Rash [None]
